FAERS Safety Report 5753809-6 (Version None)
Quarter: 2008Q2

REPORT INFORMATION
  Report Type: 
  Country: None (occurrence: None)
  Receive Date: 20080530
  Receipt Date: 20080527
  Transmission Date: 20081010
  Serious: Yes (Hospitalization)
  Sender: FDA-Public Use
  Company Number: US-MERCK-0805USA05642

PATIENT
  Age: 58 Year
  Sex: Male

DRUGS (3)
  1. JANUVIA [Suspect]
     Indication: TYPE 2 DIABETES MELLITUS
     Route: 048
     Dates: end: 20080501
  2. GLIMEPIRIDE [Concomitant]
     Route: 065
  3. HYZAAR [Suspect]
     Route: 048
     Dates: end: 20080501

REACTIONS (1)
  - PULMONARY EMBOLISM [None]
